FAERS Safety Report 8502303-8 (Version None)
Quarter: 2012Q3

REPORT INFORMATION
  Report Type: 
  Country: None (occurrence: None)
  Receive Date: 20120711
  Receipt Date: 20111007
  Transmission Date: 20120928
  Serious: No
  Sender: FDA-Public Use
  Company Number: US-COVIDIEN/TYCO HEALTHCARE/MALLINCKRODT-T201102514

PATIENT
  Sex: Female
  Weight: 53.968 kg

DRUGS (5)
  1. OXYCODONE HCL [Suspect]
     Indication: PAIN
     Dosage: 30 MG, Q 4-6 HRS
     Route: 048
     Dates: start: 20110908, end: 20111007
  2. IBUPROFEN [Concomitant]
     Indication: PAIN
     Dosage: UNK, PRN
  3. FLEXERIL [Concomitant]
     Indication: MUSCULOSKELETAL STIFFNESS
     Dosage: UNK, PRN
  4. KLONOPIN [Concomitant]
     Indication: ANXIETY
     Dosage: 1 MG, PRN
  5. FENTANYL [Concomitant]
     Indication: PAIN
     Dosage: 100 UG/HR, Q 3 DAYS

REACTIONS (3)
  - HEADACHE [None]
  - ABDOMINAL DISCOMFORT [None]
  - DIZZINESS [None]
